FAERS Safety Report 5104828-4 (Version None)
Quarter: 2006Q3

REPORT INFORMATION
  Report Type: 
  Country: None (occurrence: None)
  Receive Date: 20060914
  Receipt Date: 20060731
  Transmission Date: 20061208
  Serious: Yes (Other)
  Sender: FDA-Public Use
  Company Number: JP-ROCHE-457960

PATIENT
  Age: 69 Year
  Sex: Male
  Weight: 59 kg

DRUGS (4)
  1. PEGASYS [Suspect]
     Route: 058
     Dates: start: 20050713, end: 20060719
  2. ALDACTONE A [Concomitant]
     Route: 048
     Dates: start: 20020812
  3. MICARDIS [Concomitant]
     Route: 048
     Dates: start: 20050720
  4. GASTER D [Concomitant]
     Route: 048
     Dates: start: 20050921

REACTIONS (1)
  - CEREBRAL INFARCTION [None]
